FAERS Safety Report 13487537 (Version 4)
Quarter: 2017Q2

REPORT INFORMATION
  Report Type: Spontaneous
  Country: JP (occurrence: JP)
  Receive Date: 20170426
  Receipt Date: 20170619
  Transmission Date: 20170830
  Serious: Yes (Other)
  Sender: FDA-Public Use
  Company Number: JP-GE HEALTHCARE LIFE SCIENCES-2017CSU000990

PATIENT

DRUGS (9)
  1. SOLDEM 1 [Concomitant]
     Active Substance: DEXTROSE\SODIUM CHLORIDE\SODIUM LACTATE
     Dosage: 200 ML, BID
     Route: 042
     Dates: start: 20170414, end: 20170414
  2. CEFTRIAXONE SODIUM. [Concomitant]
     Active Substance: CEFTRIAXONE SODIUM
     Indication: ACUTE FOCAL BACTERIAL NEPHRITIS
     Dosage: 1 G, BID
     Route: 042
     Dates: start: 20170414, end: 20170414
  3. OMNIPAQUE [Suspect]
     Active Substance: IOHEXOL
     Indication: ACUTE FOCAL BACTERIAL NEPHRITIS
     Dosage: 60 ML, SINGLE
     Route: 042
     Dates: start: 20170414, end: 20170414
  4. SOLDEM 1 [Concomitant]
     Active Substance: DEXTROSE\SODIUM CHLORIDE\SODIUM LACTATE
     Indication: ACUTE FOCAL BACTERIAL NEPHRITIS
     Dosage: 200 ML, BID
     Route: 042
     Dates: start: 20170414, end: 20170414
  5. COCARL [Concomitant]
     Active Substance: ACETAMINOPHEN
     Dosage: 300 MG, QD
     Route: 048
     Dates: start: 20170414, end: 20170414
  6. CEFTRIAXONE SODIUM. [Concomitant]
     Active Substance: CEFTRIAXONE SODIUM
     Dosage: 1 G, BID
     Route: 065
     Dates: start: 20170414, end: 20170426
  7. COCARL [Concomitant]
     Active Substance: ACETAMINOPHEN
     Indication: ACUTE FOCAL BACTERIAL NEPHRITIS
     Dosage: 300 MG, QD
     Dates: start: 20170414, end: 20170414
  8. CEFTRIAXONE SODIUM. [Concomitant]
     Active Substance: CEFTRIAXONE SODIUM
     Dosage: 1 G, BID
     Route: 042
     Dates: start: 20140414, end: 20140426
  9. SOLITA-T2 [Concomitant]
     Indication: ACUTE FOCAL BACTERIAL NEPHRITIS
     Dosage: 500 ML, BID
     Route: 042
     Dates: start: 20170414, end: 20170419

REACTIONS (2)
  - Brain oedema [Unknown]
  - Delirium febrile [Recovered/Resolved]

NARRATIVE: CASE EVENT DATE: 20170414
